FAERS Safety Report 5358431-1 (Version None)
Quarter: 2007Q2

REPORT INFORMATION
  Report Type: 
  Country: None (occurrence: None)
  Receive Date: 20070615
  Receipt Date: 20070612
  Transmission Date: 20071010
  Serious: Yes (Other)
  Sender: FDA-Public Use
  Company Number: PHNU2007DE01696

PATIENT
  Age: 72 Year
  Sex: Male

DRUGS (5)
  1. ZOMETA [Suspect]
     Indication: MULTIPLE MYELOMA
     Dosage: 4 MG, QMO
     Dates: start: 20050201
  2. THALIDOMIDE [Concomitant]
     Indication: MULTIPLE MYELOMA
     Dosage: 700 MG/DAY
     Route: 065
  3. BENDAMUSTINE [Concomitant]
     Indication: MULTIPLE MYELOMA
     Dosage: 100 MG/DAY
     Route: 065
     Dates: start: 20070401
  4. PREDNISONE TAB [Concomitant]
     Dosage: 100 MG/DAY
     Route: 065
     Dates: start: 20070512, end: 20070527
  5. RADIOTHERAPY [Concomitant]
     Dosage: 36 GY
     Route: 065
     Dates: end: 20060901

REACTIONS (2)
  - DENTAL TREATMENT [None]
  - OSTEONECROSIS [None]
